FAERS Safety Report 6111309-8 (Version None)
Quarter: 2009Q1

REPORT INFORMATION
  Report Type: 
  Country: None (occurrence: None)
  Receive Date: 20090309
  Receipt Date: 20090224
  Transmission Date: 20090719
  Serious: Yes (Life-Threatening, Hospitalization)
  Sender: FDA-Public Use
  Company Number: 2009AL001200

PATIENT
  Age: 62 Year
  Sex: Female

DRUGS (6)
  1. METFORMIN HCL [Suspect]
     Indication: DIABETES MELLITUS
     Dosage: 1000 MG; BID; PO
     Route: 048
  2. MICARDIS HCT [Concomitant]
  3. ERYMAX [Concomitant]
  4. SIMVASTATIN [Concomitant]
  5. ALBYL-E [Concomitant]
  6. ATENOLOL [Concomitant]

REACTIONS (5)
  - BODY TEMPERATURE INCREASED [None]
  - BRADYCARDIA [None]
  - HYPOTENSION [None]
  - LACTIC ACIDOSIS [None]
  - RENAL FAILURE ACUTE [None]
